FAERS Safety Report 15523362 (Version 1)
Quarter: 2018Q4

REPORT INFORMATION
  Report Type: Spontaneous
  Country: BE (occurrence: BE)
  Receive Date: 20181018
  Receipt Date: 20181018
  Transmission Date: 20190205
  Serious: Yes (Death, Life-Threatening)
  Sender: FDA-Public Use
  Company Number: BE-009507513-1810BEL008023

PATIENT
  Age: 68 Year
  Sex: Female
  Weight: 83.7 kg

DRUGS (8)
  1. TENIF [Suspect]
     Active Substance: ATENOLOL\NIFEDIPINE
     Indication: HYPERTENSION
     Dosage: 1 DF, QD
     Route: 048
  2. ASAFLOW [Concomitant]
     Active Substance: ASPIRIN
     Dosage: 80 MG, QD
     Route: 048
  3. ELTHYRONE [Concomitant]
     Active Substance: LEVOTHYROXINE
     Indication: HYPOTHYROIDISM
     Dosage: 100 MG, QD
     Route: 048
  4. GLUCOSAMINE [Concomitant]
     Active Substance: GLUCOSAMINE
     Dosage: 1500 MG, UNK
     Route: 048
     Dates: start: 200501
  5. TRADONAL [Suspect]
     Active Substance: TRAMADOL HYDROCHLORIDE
     Indication: PAIN
     Dosage: 200 MG, QD
     Route: 048
     Dates: start: 200507
  6. DEANXIT [Suspect]
     Active Substance: FLUPENTIXOL DIHYDROCHLORIDE\MELITRACEN HYDROCHLORIDE
     Indication: PAIN
     Dosage: 1 DF, QD
     Route: 048
  7. EZETROL [Suspect]
     Active Substance: EZETIMIBE
     Indication: HYPERCHOLESTEROLAEMIA
     Dosage: 10 MG, QD
     Route: 048
     Dates: start: 200511
  8. PANADOL [Suspect]
     Active Substance: ACETAMINOPHEN
     Indication: PAIN
     Dosage: 3 G, QD
     Route: 048

REACTIONS (2)
  - Pancreatitis [Fatal]
  - Renal failure [Fatal]

NARRATIVE: CASE EVENT DATE: 20060118
